FAERS Safety Report 7900563-5 (Version None)
Quarter: 2011Q4

REPORT INFORMATION
  Report Type: 
  Country: None (occurrence: None)
  Receive Date: 20111108
  Receipt Date: 20111031
  Transmission Date: 20120403
  Serious: Yes (Hospitalization)
  Sender: FDA-Public Use
  Company Number: US-US-EMD SERONO, INC.-7083453

PATIENT
  Sex: Female

DRUGS (1)
  1. REBIF [Suspect]
     Indication: PRODUCT USED FOR UNKNOWN INDICATION
     Route: 058
     Dates: start: 20110602

REACTIONS (10)
  - ABDOMINAL WOUND DEHISCENCE [None]
  - URINARY TRACT INFECTION [None]
  - PNEUMONIA [None]
  - HYPERSENSITIVITY [None]
  - PAIN [None]
  - PULMONARY THROMBOSIS [None]
  - IMPAIRED HEALING [None]
  - INJECTION SITE ERYTHEMA [None]
  - BREAST CANCER STAGE I [None]
  - PYREXIA [None]
